FAERS Safety Report 19665863 (Version 1)
Quarter: 2021Q3

REPORT INFORMATION
  Report Type: Report from Study
  Country: US (occurrence: US)
  Receive Date: 20210806
  Receipt Date: 20210806
  Transmission Date: 20211014
  Serious: Yes (Death, Other)
  Sender: FDA-Public Use
  Company Number: US-EMD SERONO-9255612

PATIENT
  Age: 81 Year
  Sex: Male

DRUGS (1)
  1. REBIF [Suspect]
     Active Substance: INTERFERON BETA-1A
     Indication: MULTIPLE SCLEROSIS
     Route: 058
     Dates: start: 20150713, end: 202012

REACTIONS (6)
  - Lung disorder [Unknown]
  - Pulmonary oedema [Unknown]
  - Localised infection [Unknown]
  - Multiple organ dysfunction syndrome [Fatal]
  - Cardiac disorder [Unknown]
  - Asthenia [Unknown]

NARRATIVE: CASE EVENT DATE: 202012
